FAERS Safety Report 7732773-4 (Version None)
Quarter: 2011Q3

REPORT INFORMATION
  Report Type: 
  Country: None (occurrence: None)
  Receive Date: 20110901
  Receipt Date: 20110901
  Transmission Date: 20111222
  Serious: No
  Sender: FDA-Public Use
  Company Number: None

PATIENT
  Sex: Female

DRUGS (1)
  1. VICTRELIS [Suspect]
     Indication: HEPATITIS C
     Dosage: 4 CAPS (800 MG) TID W/FOOD ORAL
     Route: 048
     Dates: start: 20110805, end: 20110824

REACTIONS (6)
  - DIZZINESS [None]
  - FATIGUE [None]
  - NAUSEA [None]
  - DYSSTASIA [None]
  - DYSPNOEA [None]
  - VOMITING [None]
